FAERS Safety Report 10089173 (Version 2)
Quarter: 2014Q2

REPORT INFORMATION
  Report Type: Report from Study
  Country: FR (occurrence: FR)
  Receive Date: 20140421
  Receipt Date: 20140502
  Transmission Date: 20141212
  Serious: Yes (Hospitalization)
  Sender: FDA-Public Use
  Company Number: FR-INCYTE CORPORATION-2014IN001025

PATIENT
  Age: 59 Year
  Sex: Male
  Weight: 75 kg

DRUGS (20)
  1. INC424 [Suspect]
     Indication: MYELOFIBROSIS
     Dosage: 15 MG, BID
     Route: 048
     Dates: start: 20130516, end: 20131006
  2. INC424 [Suspect]
     Dosage: 10 MG, BID
     Route: 048
     Dates: start: 20131007, end: 20131013
  3. INC424 [Suspect]
     Dosage: 5 MG, QD
     Route: 048
     Dates: start: 20131014, end: 20131016
  4. DELURSAN [Concomitant]
     Dosage: UNK
     Dates: start: 201311
  5. ZELITREX [Concomitant]
     Dosage: UNK
     Dates: start: 201311
  6. ORACILLINE                         /00001801/ [Concomitant]
     Dosage: UNK
     Dates: start: 201311
  7. DEROXAT [Concomitant]
     Dosage: UNK
     Dates: start: 201311
  8. BACTRIM [Concomitant]
     Dosage: UNK
     Dates: start: 201311
  9. LANTUS [Concomitant]
     Dosage: UNK
     Dates: start: 201403
  10. INEXIUM                            /01479302/ [Concomitant]
     Dosage: UNK
     Dates: start: 201311
  11. INNOVAIR [Concomitant]
     Dosage: UNK
     Dates: start: 201403
  12. SPIRIVA [Concomitant]
     Dosage: UNK
     Dates: start: 201403
  13. NEORAL [Concomitant]
     Dosage: UNK
     Dates: start: 20131119
  14. IMOVANE [Concomitant]
     Dosage: UNK
     Dates: start: 201403
  15. CORTANCYL [Concomitant]
     Dosage: UNK
     Dates: start: 201403
  16. AVODART [Concomitant]
     Dosage: UNK
     Dates: start: 201403
  17. ROVALCYTE [Concomitant]
     Dosage: UNK
     Dates: start: 201403
  18. XANAX [Concomitant]
     Dosage: UNK
     Dates: start: 201403
  19. ARANESP [Concomitant]
     Dosage: UNK
     Dates: start: 201403
  20. DESFERAL [Concomitant]
     Dosage: UNK
     Dates: start: 201403

REACTIONS (3)
  - Tremor [Not Recovered/Not Resolved]
  - Gait disturbance [Not Recovered/Not Resolved]
  - Fatigue [Not Recovered/Not Resolved]
